FAERS Safety Report 25262238 (Version 1)
Quarter: 2025Q2

REPORT INFORMATION
  Report Type: Other
  Country: FR (occurrence: FR)
  Receive Date: 20250502
  Receipt Date: 20250502
  Transmission Date: 20250716
  Serious: Yes (Hospitalization)
  Sender: ZYDUS PHARM
  Company Number: None

PATIENT

DRUGS (3)
  1. VENLAFAXINE [Suspect]
     Active Substance: VENLAFAXINE HYDROCHLORIDE
     Indication: Suicide attempt
     Route: 048
     Dates: start: 20250402, end: 20250402
  2. TRAMADOL [Suspect]
     Active Substance: TRAMADOL
     Indication: Suicide attempt
     Route: 048
     Dates: start: 20250402, end: 20250402
  3. ESTAZOLAM [Suspect]
     Active Substance: ESTAZOLAM
     Indication: Suicide attempt
     Route: 048
     Dates: start: 20250402, end: 20250402

REACTIONS (1)
  - Suicide attempt [Recovered/Resolved]

NARRATIVE: CASE EVENT DATE: 20250402
